FAERS Safety Report 7161250-7 (Version None)
Quarter: 2010Q4

REPORT INFORMATION
  Report Type: 
  Country: None (occurrence: None)
  Receive Date: 20101210
  Receipt Date: 20101210
  Transmission Date: 20110411
  Serious: Yes (Other)
  Sender: FDA-Public Use
  Company Number: None

PATIENT
  Sex: Female
  Weight: 52.1637 kg

DRUGS (12)
  1. NABUMETONE [Suspect]
     Indication: ARTHRALGIA
     Dosage: 3 TABLETS 3XDAY PO
     Route: 048
  2. NABUMETONE [Suspect]
     Indication: BONE PAIN
     Dosage: 3 TABLETS 3XDAY PO
     Route: 048
  3. DEXEDRINE [Concomitant]
  4. EXFORGE [Concomitant]
  5. SPIRONOLACTONE [Concomitant]
  6. DILTIAZEM HCL [Concomitant]
  7. AMANTAZINE [Concomitant]
  8. AVONEX [Concomitant]
  9. PREMARIN [Concomitant]
  10. VESICARE [Concomitant]
  11. ARICEPT [Concomitant]
  12. HYDROCODONE [Concomitant]

REACTIONS (2)
  - ANXIETY [None]
  - HYPERTENSION [None]
